FAERS Safety Report 23192669 (Version 1)
Quarter: 2023Q4

REPORT INFORMATION
  Report Type: Spontaneous
  Country: US (occurrence: US)
  Receive Date: 20231116
  Receipt Date: 20231116
  Transmission Date: 20240110
  Serious: No
  Sender: FDA-Public Use
  Company Number: US-SA-SAC20231108001919

PATIENT
  Sex: Female

DRUGS (8)
  1. DUPIXENT [Suspect]
     Active Substance: DUPILUMAB
     Indication: Dermatitis atopic
     Dosage: 300 MG, QOW
     Route: 058
  2. VITAMIN C [Concomitant]
     Active Substance: ASCORBIC ACID
  3. HALOPERIDOL [Concomitant]
     Active Substance: HALOPERIDOL
     Dosage: HALDOL MEDICATION TO 50 MG THEN 25 MG
  4. LOSARTAN POTASSIUM [Concomitant]
     Active Substance: LOSARTAN POTASSIUM
  5. MIRTAZAPINE [Concomitant]
     Active Substance: MIRTAZAPINE
  6. SERTRALINE [Concomitant]
     Active Substance: SERTRALINE HYDROCHLORIDE
  7. TRAZODONE HCL [Concomitant]
     Active Substance: TRAZODONE HYDROCHLORIDE
  8. VITAMIN D NOS [Concomitant]
     Active Substance: VITAMIN D NOS

REACTIONS (4)
  - Dry skin [Not Recovered/Not Resolved]
  - Rash [Not Recovered/Not Resolved]
  - Dermatitis atopic [Not Recovered/Not Resolved]
  - Product dose omission in error [Unknown]
